FAERS Safety Report 8597268 (Version 2)
Quarter: 2013Q3

REPORT INFORMATION
  Report Type: Spontaneous
  Country: US (occurrence: US)
  Receive Date: 20120605
  Receipt Date: 20130704
  Transmission Date: 20140515
  Serious: Yes (Hospitalization)
  Sender: FDA-Public Use
  Company Number: US-ASTRAZENECA-2012SE34823

PATIENT
  Age: 18 Year
  Sex: Female
  Weight: 56.2 kg

DRUGS (6)
  1. NEXIUM [Suspect]
     Indication: GASTROOESOPHAGEAL REFLUX DISEASE
     Route: 048
     Dates: start: 200412, end: 201011
  2. PREVACID [Suspect]
     Route: 065
  3. RANITIDINE [Suspect]
     Route: 065
  4. ZANTAC [Concomitant]
  5. TUMS [Concomitant]
  6. ROLAIDS [Concomitant]

REACTIONS (11)
  - Lower limb fracture [Unknown]
  - Osteoporosis [Unknown]
  - Multiple fractures [Unknown]
  - Hand fracture [Unknown]
  - Abdominal distension [Unknown]
  - Contusion [Unknown]
  - Toothache [Unknown]
  - Migraine [Unknown]
  - Arthritis [Unknown]
  - Diabetes mellitus [Unknown]
  - Depression [Unknown]
